FAERS Safety Report 9613756 (Version 1)
Quarter: 2013Q4

REPORT INFORMATION
  Report Type: Spontaneous
  Country: SI (occurrence: SI)
  Receive Date: 20131010
  Receipt Date: 20131010
  Transmission Date: 20140711
  Serious: Yes (Other)
  Sender: FDA-Public Use
  Company Number: PHHY2013SI113862

PATIENT
  Sex: Male

DRUGS (3)
  1. EXELON PATCH [Suspect]
     Indication: DEMENTIA ALZHEIMER^S TYPE
     Dosage: 9.5 MG/24 HOURS
     Route: 062
  2. EXELON PATCH [Suspect]
     Dosage: 13.3 MG/24 HOURS
     Route: 062
  3. EXELON PATCH [Suspect]
     Dosage: 9.5 MG/24 HOURS
     Route: 062

REACTIONS (1)
  - Psychotic disorder [Unknown]
